FAERS Safety Report 4332044-2 (Version None)
Quarter: 2004Q1

REPORT INFORMATION
  Report Type: 
  Country: None (occurrence: None)
  Receive Date: 20040329
  Receipt Date: 20040317
  Transmission Date: 20041129
  Serious: Yes (Hospitalization, Other)
  Sender: FDA-Public Use
  Company Number: 2003-11-2196

PATIENT
  Age: 72 Year
  Sex: Female
  Weight: 47 kg

DRUGS (11)
  1. INTRON A [Suspect]
     Indication: MULTIPLE MYELOMA
     Dosage: 9 MU QD INTRAMUSCULAR; 9 MU QD INTRAMUSCULAR;9 MU 5DY/WK INTRAMUSCULAR
     Route: 030
     Dates: start: 20030610, end: 20030614
  2. INTRON A [Suspect]
     Indication: MULTIPLE MYELOMA
     Dosage: 9 MU QD INTRAMUSCULAR; 9 MU QD INTRAMUSCULAR;9 MU 5DY/WK INTRAMUSCULAR
     Route: 030
     Dates: start: 20030701, end: 20030705
  3. INTRON A [Suspect]
     Indication: MULTIPLE MYELOMA
     Dosage: 9 MU QD INTRAMUSCULAR; 9 MU QD INTRAMUSCULAR;9 MU 5DY/WK INTRAMUSCULAR
     Route: 030
     Dates: start: 20030610, end: 20030823
  4. INTRON A [Suspect]
     Indication: MULTIPLE MYELOMA
     Dosage: 9 MU QD INTRAMUSCULAR; 9 MU QD INTRAMUSCULAR;9 MU 5DY/WK INTRAMUSCULAR
     Route: 030
     Dates: start: 20030819, end: 20030823
  5. MELPHALAN [Suspect]
     Indication: MULTIPLE MYELOMA
     Dosage: 12 MG QD ORAL; 12 MG QD ORAL; ORAL; 12 MG QD ORAL
     Route: 048
     Dates: start: 20030610, end: 20030613
  6. MELPHALAN [Suspect]
     Indication: MULTIPLE MYELOMA
     Dosage: 12 MG QD ORAL; 12 MG QD ORAL; ORAL; 12 MG QD ORAL
     Route: 048
     Dates: start: 20030701, end: 20030704
  7. MELPHALAN [Suspect]
     Indication: MULTIPLE MYELOMA
     Dosage: 12 MG QD ORAL; 12 MG QD ORAL; ORAL; 12 MG QD ORAL
     Route: 048
     Dates: start: 20030819, end: 20030822
  8. MELPHALAN [Suspect]
     Indication: MULTIPLE MYELOMA
     Dosage: 12 MG QD ORAL; 12 MG QD ORAL; ORAL; 12 MG QD ORAL
     Route: 048
     Dates: start: 20030716
  9. PREDNISOLONE [Suspect]
     Dosage: 90 MG QD ORAL
     Route: 048
     Dates: start: 20030610, end: 20030613
  10. PREDNISOLONE [Suspect]
     Dosage: 90 MG QD ORAL
     Route: 048
     Dates: start: 20030701, end: 20030704
  11. PREDNISOLONE [Suspect]
     Dosage: 90 MG QD ORAL
     Route: 048
     Dates: start: 20030819, end: 20030822

REACTIONS (3)
  - BONE MARROW DEPRESSION [None]
  - INCREASED APPETITE [None]
  - INFECTION [None]
